FAERS Safety Report 15724211 (Version 2)
Quarter: 2019Q1

REPORT INFORMATION
  Report Type: Spontaneous
  Country: US (occurrence: US)
  Receive Date: 20181214
  Receipt Date: 20190201
  Transmission Date: 20190417
  Serious: Yes (Hospitalization, Other)
  Sender: FDA-Public Use
  Company Number: US-OTSUKA-2018_022142

PATIENT
  Sex: Female

DRUGS (4)
  1. ABILIFY [Suspect]
     Active Substance: ARIPIPRAZOLE
     Indication: MAJOR DEPRESSION
  2. ABILIFY [Suspect]
     Active Substance: ARIPIPRAZOLE
     Indication: BIPOLAR DISORDER
     Dosage: 20 MG, QD
     Route: 065
     Dates: end: 201503
  3. ARIPIPRAZOLE. [Concomitant]
     Active Substance: ARIPIPRAZOLE
     Indication: PRODUCT USED FOR UNKNOWN INDICATION
     Dosage: UNK
     Route: 065
     Dates: start: 20150603, end: 20180527
  4. ABILIFY [Suspect]
     Active Substance: ARIPIPRAZOLE
     Indication: SCHIZOPHRENIA
     Dosage: 10 MG, QD
     Route: 065
     Dates: start: 200303

REACTIONS (23)
  - Hernia repair [Unknown]
  - Anhedonia [Unknown]
  - Compulsive hoarding [Recovered/Resolved]
  - Cough [Unknown]
  - Gambling disorder [Recovered/Resolved]
  - Compulsive shopping [Recovered/Resolved]
  - Dermatillomania [Recovered/Resolved]
  - Skin cosmetic procedure [Unknown]
  - Weight increased [Unknown]
  - Injury [Unknown]
  - Abdominal pain [Unknown]
  - Pain [Unknown]
  - Anxiety [Unknown]
  - Emotional distress [Unknown]
  - Eating disorder [Recovered/Resolved]
  - Trichotillomania [Recovered/Resolved]
  - Obsessive-compulsive disorder [Recovered/Resolved]
  - Loss of employment [Unknown]
  - Economic problem [Unknown]
  - Suicide attempt [Recovered/Resolved]
  - Suicidal ideation [Recovered/Resolved]
  - Condition aggravated [Recovered/Resolved]
  - Divorced [Unknown]

NARRATIVE: CASE EVENT DATE: 2008
